FAERS Safety Report 5631771-4 (Version None)
Quarter: 2008Q1

REPORT INFORMATION
  Report Type: 
  Country: None (occurrence: None)
  Receive Date: 20080219
  Receipt Date: 20080219
  Transmission Date: 20080703
  Serious: No
  Sender: FDA-Public Use
  Company Number: None

PATIENT
  Sex: Female
  Weight: 59.8748 kg

DRUGS (3)
  1. CARBAMAZEPINE [Suspect]
     Indication: CONVULSION
     Dosage: 200MG 1 1/2 TAB PO BID
     Route: 048
  2. KEPPRA [Concomitant]
  3. DILANTIN [Concomitant]

REACTIONS (3)
  - CONVULSION [None]
  - PHARMACEUTICAL PRODUCT COMPLAINT [None]
  - THERAPEUTIC RESPONSE UNEXPECTED WITH DRUG SUBSTITUTION [None]
